FAERS Safety Report 8078799-5 (Version None)
Quarter: 2012Q1

REPORT INFORMATION
  Report Type: 
  Country: None (occurrence: None)
  Receive Date: 20120125
  Receipt Date: 20120116
  Transmission Date: 20120608
  Serious: Yes (Hospitalization)
  Sender: FDA-Public Use
  Company Number: 1000027176

PATIENT
  Age: 86 Year
  Sex: Female

DRUGS (2)
  1. VIIBRYD [Suspect]
     Indication: DEPRESSION
     Dosage: 40 MG (40 MG, 1 IN 1 D)
     Dates: end: 20120101
  2. VIIBRYD [Suspect]
     Indication: DEPRESSION
     Dosage: 10; 20 MG (10 MG, 1 IN 1 D)
     Dates: start: 20111201

REACTIONS (1)
  - INAPPROPRIATE ANTIDIURETIC HORMONE SECRETION [None]
